FAERS Safety Report 5562387-6 (Version None)
Quarter: 2007Q4

REPORT INFORMATION
  Report Type: 
  Country: None (occurrence: None)
  Receive Date: 20071215
  Receipt Date: 20070611
  Transmission Date: 20080405
  Serious: No
  Sender: FDA-Public Use
  Company Number: US-AMGEN-US228795

PATIENT
  Sex: Female

DRUGS (11)
  1. ARANESP [Suspect]
     Indication: DIALYSIS
     Route: 065
  2. LANTUS [Concomitant]
     Route: 065
  3. VITAMIN B-12 [Concomitant]
     Route: 065
  4. ASCORBIC ACID [Concomitant]
     Route: 065
  5. TYLENOL (CAPLET) [Concomitant]
     Route: 065
  6. FLAX SEED OIL [Concomitant]
     Route: 065
  7. VITAMIN B COMPLEX CAP [Concomitant]
     Route: 065
  8. LIPITOR [Concomitant]
     Route: 065
  9. RENAGEL [Concomitant]
     Route: 065
  10. METAPROTERENOL [Concomitant]
     Route: 065
  11. NOVOLIN R [Concomitant]
     Route: 065

REACTIONS (1)
  - THERAPEUTIC RESPONSE DECREASED [None]
